FAERS Safety Report 8542487-9 (Version None)
Quarter: 2012Q3

REPORT INFORMATION
  Report Type: 
  Country: None (occurrence: None)
  Receive Date: 20120726
  Receipt Date: 20120409
  Transmission Date: 20120928
  Serious: Yes (Other)
  Sender: FDA-Public Use
  Company Number: US-ASTRAZENECA-2010SE30740

PATIENT
  Age: 62 Year
  Sex: Female
  Weight: 68.5 kg

DRUGS (21)
  1. SEROQUEL [Suspect]
     Route: 048
  2. PROZAC [Suspect]
     Route: 048
     Dates: start: 20100101, end: 20100401
  3. REQUIP [Suspect]
     Route: 048
     Dates: start: 20100101, end: 20100401
  4. SEROQUEL [Suspect]
     Route: 048
  5. SEROQUEL [Suspect]
     Dosage: TAKES TWO TABLETS OF SEROQUEL
     Route: 048
  6. SEROQUEL [Suspect]
     Dosage: TAKES TWO TABLETS OF SEROQUEL
     Route: 048
  7. TYLENOL W/ CODEINE NO. 2 [Suspect]
     Route: 048
     Dates: start: 20100101, end: 20100401
  8. DIVALPROEX SODIUM [Concomitant]
     Route: 048
  9. SEROQUEL [Suspect]
     Route: 048
  10. SEROQUEL [Suspect]
     Route: 048
  11. EXCEDRIN (MIGRAINE) [Concomitant]
     Route: 048
  12. SEROQUEL [Suspect]
     Route: 048
  13. ROPINIROLE HYDROCHLORIDE [Concomitant]
     Route: 048
  14. LORATADINE [Concomitant]
     Route: 048
  15. SEROQUEL [Suspect]
     Indication: SLEEP DISORDER
     Route: 048
     Dates: start: 20100101, end: 20100401
  16. BUPROPION HCL [Concomitant]
     Route: 048
  17. FUROSEMIDE [Concomitant]
     Route: 048
  18. SEROQUEL [Suspect]
     Indication: BIPOLAR DISORDER
     Route: 048
     Dates: start: 20100101, end: 20100401
  19. SEROQUEL [Suspect]
     Route: 048
  20. KLONOPIN [Suspect]
     Route: 048
     Dates: start: 20100101, end: 20100401
  21. FUROSEMIDE [Concomitant]
     Indication: OEDEMA PERIPHERAL
     Route: 048

REACTIONS (14)
  - FEELING ABNORMAL [None]
  - INTENTIONAL DRUG MISUSE [None]
  - MALAISE [None]
  - IMPAIRED WORK ABILITY [None]
  - COGNITIVE DISORDER [None]
  - ACTIVITIES OF DAILY LIVING IMPAIRED [None]
  - PARANOIA [None]
  - WITHDRAWAL SYNDROME [None]
  - SCHIZOPHRENIA [None]
  - OEDEMA [None]
  - INSOMNIA [None]
  - TREMOR [None]
  - GRAND MAL CONVULSION [None]
  - PANIC DISORDER [None]
